FAERS Safety Report 7054381-3 (Version None)
Quarter: 2010Q4

REPORT INFORMATION
  Report Type: 
  Country: None (occurrence: None)
  Receive Date: 20101015
  Receipt Date: 20100930
  Transmission Date: 20110411
  Serious: Yes (Death)
  Sender: FDA-Public Use
  Company Number: 2010BI034374

PATIENT
  Age: 72 Year
  Sex: Female

DRUGS (4)
  1. ZEVALIN [Suspect]
     Indication: FOLLICLE CENTRE LYMPHOMA, FOLLICULAR GRADE I, II, III
     Dosage: 477.3 MBQ;1X;IVDRP
     Route: 041
     Dates: start: 20100309, end: 20100316
  2. RITUXIMAB [Concomitant]
  3. CLADRIBINE [Concomitant]
  4. FLUDARABINE PHOSPHATE [Concomitant]

REACTIONS (1)
  - HEPATIC FAILURE [None]
